FAERS Safety Report 15013892 (Version 2)
Quarter: 2018Q3

REPORT INFORMATION
  Report Type: Report from Study
  Country: None (occurrence: NL)
  Receive Date: 20180614
  Receipt Date: 20180806
  Transmission Date: 20181010
  Serious: Yes (Death)
  Sender: FDA-Public Use
  Company Number: NL-ABBVIE-18K-114-2386975-00

PATIENT
  Age: 76 Year
  Sex: Male

DRUGS (1)
  1. DUODOPA [Suspect]
     Active Substance: CARBIDOPA\LEVODOPA
     Indication: PARKINSON^S DISEASE
     Dosage: MD: 14.0 CD: 2.9  ED: 3
     Route: 050
     Dates: start: 20160525

REACTIONS (1)
  - Death [Fatal]

NARRATIVE: CASE EVENT DATE: 20180419
